FAERS Safety Report 18936753 (Version 1)
Quarter: 2021Q1

REPORT INFORMATION
  Report Type: Other
  Country: US (occurrence: US)
  Receive Date: 20210225
  Receipt Date: 20210225
  Transmission Date: 20210420
  Serious: Yes (Other)
  Sender: FDA-Public Use
  Company Number: US-ROCHE-2777062

PATIENT
  Sex: Female

DRUGS (2)
  1. XELODA [Suspect]
     Active Substance: CAPECITABINE
     Dosage: TAKE 1 TABLET BY MOUTH 2 TIMES PER DAY FOR 14 DAYS, THEN TAKE 7 DAYS OFF. TAKE WITH 150MG TABLETS FO
     Route: 048
  2. XELODA [Suspect]
     Active Substance: CAPECITABINE
     Indication: COLORECTAL CANCER METASTATIC
     Dosage: TAKE 6 TABLETS BY MOUTH 2 TIMES PER DAY FOR 14  DAY THEN TAKE 7 DAYS OFF. TAKE WITH 500MG TABLETS FO
     Route: 048

REACTIONS (1)
  - Hip fracture [Unknown]
